FAERS Safety Report 8633246 (Version 2)
Quarter: 2012Q4

REPORT INFORMATION
  Report Type: 
  Country: US (occurrence: US)
  Receive Date: 20120625
  Receipt Date: 20120914
  Transmission Date: 20130627
  Serious: Yes (Hospitalization, Other)
  Sender: FDA-Public Use
  Company Number: US-US-EMD SERONO, INC.-7141779

PATIENT
  Sex: Female

DRUGS (3)
  1. REBIF [Suspect]
     Indication: MULTIPLE SCLEROSIS
     Route: 058
     Dates: start: 201101, end: 201103
  2. REBIF [Suspect]
     Route: 058
     Dates: start: 201105
  3. REBIF [Suspect]
     Route: 058
     Dates: start: 20120426

REACTIONS (1)
  - Ectopic pregnancy [Recovered/Resolved]
